FAERS Safety Report 10363054 (Version 1)
Quarter: 2014Q3

REPORT INFORMATION
  Report Type: Spontaneous
  Country: US (occurrence: US)
  Receive Date: 20140805
  Receipt Date: 20140805
  Transmission Date: 20150326
  Serious: No
  Sender: FDA-Public Use
  Company Number: US-B.I. PHARMACEUTICALS,INC./RIDGEFIELD-2014-BI-34526BP

PATIENT
  Sex: Male
  Weight: 74 kg

DRUGS (4)
  1. LISINOPRIL/HCT [Concomitant]
     Indication: HYPERTENSION
     Dosage: STRENGTH: 10/25 MG; DAILY DOSE: 10/25 MG
     Route: 048
     Dates: start: 2000
  2. CRESTOR [Concomitant]
     Active Substance: ROSUVASTATIN CALCIUM
     Indication: BLOOD TRIGLYCERIDES INCREASED
     Dosage: 20 MG
     Route: 048
     Dates: start: 2011
  3. METOPROLOL [Concomitant]
     Active Substance: METOPROLOL
     Indication: HYPERTENSION
     Dosage: 25 MG
     Route: 048
     Dates: start: 2005
  4. PRADAXA [Suspect]
     Active Substance: DABIGATRAN ETEXILATE MESYLATE
     Indication: CARDIAC ASSISTANCE DEVICE USER
     Dosage: 300 MG
     Route: 048
     Dates: start: 201208

REACTIONS (4)
  - Insomnia [Recovered/Resolved]
  - Contusion [Not Recovered/Not Resolved]
  - Atrial fibrillation [Not Recovered/Not Resolved]
  - Off label use [Not Recovered/Not Resolved]

NARRATIVE: CASE EVENT DATE: 2012
